FAERS Safety Report 18924028 (Version 1)
Quarter: 2021Q1

REPORT INFORMATION
  Report Type: Spontaneous
  Country: DE (occurrence: DE)
  Receive Date: 20210222
  Receipt Date: 20210222
  Transmission Date: 20210420
  Serious: Yes (Other)
  Sender: FDA-Public Use
  Company Number: DE-AMGEN-DEUSP2021025082

PATIENT

DRUGS (8)
  1. TALIMOGENE LAHERPAREPVEC [Suspect]
     Active Substance: TALIMOGENE LAHERPAREPVEC
     Indication: METASTASES TO LIVER
  2. NIVOLUMAB [Concomitant]
     Active Substance: NIVOLUMAB
     Indication: VAGINAL CANCER
     Dosage: UNK UNK, CYCLICAL
  3. NIVOLUMAB [Concomitant]
     Active Substance: NIVOLUMAB
     Indication: METASTASES TO LIVER
  4. IPILIMUMAB [Concomitant]
     Active Substance: IPILIMUMAB
     Indication: VAGINAL CANCER
     Dosage: UNK UNK, CYCLICAL
  5. IPILIMUMAB [Concomitant]
     Active Substance: IPILIMUMAB
     Indication: METASTASES TO LIVER
  6. PEMBROLIZUMAB. [Concomitant]
     Active Substance: PEMBROLIZUMAB
     Indication: METASTASES TO LIVER
     Dosage: UNK UNK, CYCLICAL
  7. PEMBROLIZUMAB. [Concomitant]
     Active Substance: PEMBROLIZUMAB
     Indication: VAGINAL CANCER
  8. TALIMOGENE LAHERPAREPVEC [Suspect]
     Active Substance: TALIMOGENE LAHERPAREPVEC
     Indication: GENITOURINARY MELANOMA
     Dosage: UNK UNK, Q2WK
     Route: 036

REACTIONS (5)
  - Immune-mediated enterocolitis [Unknown]
  - Drug ineffective [Unknown]
  - Immune-mediated hepatitis [Unknown]
  - Addison^s disease [Unknown]
  - Metastatic malignant melanoma [Unknown]
